FAERS Safety Report 7329910-2 (Version None)
Quarter: 2011Q1

REPORT INFORMATION
  Report Type: 
  Country: None (occurrence: None)
  Receive Date: 20110303
  Receipt Date: 20110217
  Transmission Date: 20110831
  Serious: No
  Sender: FDA-Public Use
  Company Number: B0701772A

PATIENT

DRUGS (1)
  1. RELENZA [Suspect]
     Indication: INFLUENZA
     Route: 048
     Dates: start: 20110216

REACTIONS (1)
  - WRONG TECHNIQUE IN DRUG USAGE PROCESS [None]
